FAERS Safety Report 25815817 (Version 2)
Quarter: 2025Q3

REPORT INFORMATION
  Report Type: Other
  Country: GB (occurrence: GB)
  Receive Date: 20250918
  Receipt Date: 20250924
  Transmission Date: 20251020
  Serious: Yes (Other)
  Sender: GLENMARK
  Company Number: None

PATIENT
  Age: 60 Year
  Sex: Female
  Weight: 127 kg

DRUGS (2)
  1. OLMESARTAN MEDOXOMIL [Suspect]
     Active Substance: OLMESARTAN MEDOXOMIL
     Indication: Hypertension
     Route: 065
     Dates: start: 20250625
  2. NEXLIZET [Concomitant]
     Active Substance: BEMPEDOIC ACID\EZETIMIBE
     Indication: Blood cholesterol increased
     Route: 065
     Dates: start: 20250710, end: 20250903

REACTIONS (3)
  - Rhinorrhoea [Not Recovered/Not Resolved]
  - Head discomfort [Unknown]
  - Cough [Unknown]

NARRATIVE: CASE EVENT DATE: 20250826
